FAERS Safety Report 16706867 (Version 1)
Quarter: 2019Q3

REPORT INFORMATION
  Report Type: Spontaneous
  Country: PL (occurrence: PL)
  Receive Date: 20190815
  Receipt Date: 20190815
  Transmission Date: 20191004
  Serious: Yes (Other)
  Sender: FDA-Public Use
  Company Number: PL-TEVA-2019-PL-1092909

PATIENT
  Sex: Female

DRUGS (2)
  1. VIVACE [RAMIPRIL] [Suspect]
     Active Substance: RAMIPRIL
     Dosage: DOSING TIME: EVENING
     Route: 065
  2. ESPIRO 25 MG [Suspect]
     Active Substance: EPLERENONE
     Dosage: 1 TABLET IN THE MORNING

REACTIONS (13)
  - Lividity [Recovering/Resolving]
  - Nasal congestion [Recovering/Resolving]
  - Dyspnoea [Recovering/Resolving]
  - Sight disability [Recovering/Resolving]
  - Malaise [Recovering/Resolving]
  - Peripheral coldness [Recovering/Resolving]
  - Alopecia [Recovering/Resolving]
  - Balance disorder [Recovering/Resolving]
  - Dizziness [Recovering/Resolving]
  - Tremor [Recovering/Resolving]
  - Arthritis [Recovering/Resolving]
  - Headache [Recovering/Resolving]
  - Hearing disability [Recovering/Resolving]
